FAERS Safety Report 17485659 (Version 1)
Quarter: 2020Q1

REPORT INFORMATION
  Report Type: Report from Study
  Country: None (occurrence: TN)
  Receive Date: 20200302
  Receipt Date: 20200302
  Transmission Date: 20200409
  Serious: Yes (Other)
  Sender: FDA-Public Use
  Company Number: TN-ABBVIE-20K-160-3296194-00

PATIENT
  Sex: Male

DRUGS (17)
  1. PARACETAMOL [Concomitant]
     Active Substance: ACETAMINOPHEN
     Indication: ANKYLOSING SPONDYLITIS
     Dosage: WHEN NECESSARY
     Route: 048
  2. EOLIDE [Concomitant]
     Indication: CHRONIC OBSTRUCTIVE PULMONARY DISEASE
     Dosage: 12  1 TABLET PER DAY
     Route: 048
  3. LASILIX [Concomitant]
     Active Substance: FUROSEMIDE
     Indication: HYPERTENSION
     Route: 048
  4. OMEXEL [Concomitant]
     Active Substance: TAMSULOSIN HYDROCHLORIDE
     Indication: HYPERTENSION
     Dosage: 50
     Route: 048
     Dates: end: 20200112
  5. STEROGYL [Concomitant]
     Active Substance: ERGOCALCIFEROL
     Indication: ANKYLOSING SPONDYLITIS
     Route: 048
  6. AEROLATE [Concomitant]
     Active Substance: THEOPHYLLINE ANHYDROUS
     Indication: CHRONIC OBSTRUCTIVE PULMONARY DISEASE
     Dosage: WHILE IN CRISIS
     Route: 048
  7. HUMIRA [Suspect]
     Active Substance: ADALIMUMAB
     Indication: ANKYLOSING SPONDYLITIS
     Route: 058
     Dates: start: 20190912, end: 20190912
  8. HUMIRA [Suspect]
     Active Substance: ADALIMUMAB
     Route: 058
     Dates: start: 20190927, end: 20191112
  9. HUMIRA [Suspect]
     Active Substance: ADALIMUMAB
     Indication: CROHN^S DISEASE
     Dosage: DAY 1
     Route: 058
     Dates: start: 20190828, end: 20190828
  10. SPIRIVA [Concomitant]
     Active Substance: TIOTROPIUM BROMIDE MONOHYDRATE
     Indication: CHRONIC OBSTRUCTIVE PULMONARY DISEASE
     Dosage: 18
     Route: 048
  11. FAMODINE [Concomitant]
     Active Substance: FAMOTIDINE
     Indication: GASTRIC DISORDER
     Route: 048
  12. ALPRESS [Concomitant]
     Active Substance: PRAZOSIN
     Indication: HYPERTENSION
     Route: 048
  13. APROVEL [Concomitant]
     Active Substance: IRBESARTAN
     Indication: HYPERTENSION
     Dosage: 300  1 TABLET PER DAY
     Route: 048
  14. NEBILET [Concomitant]
     Active Substance: NEBIVOLOL
     Indication: HYPERTENSION
     Route: 048
  15. CALPEROS [Concomitant]
     Indication: ANKYLOSING SPONDYLITIS
     Route: 048
  16. HUMIRA [Suspect]
     Active Substance: ADALIMUMAB
     Route: 058
     Dates: start: 20200126
  17. PHYSIOTENS [Concomitant]
     Active Substance: MOXONIDINE
     Indication: HYPERTENSION
     Dosage: 0.2 AND 0.4  1 TABLET PER DAY
     Route: 048

REACTIONS (9)
  - Deafness [Recovering/Resolving]
  - C-reactive protein increased [Recovering/Resolving]
  - Joint swelling [Not Recovered/Not Resolved]
  - Bronchitis [Recovering/Resolving]
  - Full blood count abnormal [Recovering/Resolving]
  - Tinnitus [Recovering/Resolving]
  - Bronchitis [Recovered/Resolved]
  - Respiratory tract infection [Recovering/Resolving]
  - Sleep disorder [Not Recovered/Not Resolved]

NARRATIVE: CASE EVENT DATE: 201911
